FAERS Safety Report 13534172 (Version 2)
Quarter: 2017Q2

REPORT INFORMATION
  Report Type: Spontaneous
  Country: FR (occurrence: FR)
  Receive Date: 20170510
  Receipt Date: 20170602
  Transmission Date: 20170830
  Serious: Yes (Hospitalization, Disabling, Congenital Anomaly, Other)
  Sender: FDA-Public Use
  Company Number: FR-ABBVIE-17P-056-1971520-00

PATIENT
  Sex: Male

DRUGS (1)
  1. DEPAKINE CHRONO [Suspect]
     Active Substance: VALPROATE SODIUM
     Indication: MATERNAL EXPOSURE TIMING UNSPECIFIED
     Route: 064

REACTIONS (38)
  - Muscle tone disorder [Unknown]
  - Inguinal hernia [Unknown]
  - Astigmatism [Unknown]
  - Dyspnoea [Unknown]
  - Knee deformity [Unknown]
  - Coordination abnormal [Unknown]
  - Dysgraphia [Unknown]
  - Myopia [Unknown]
  - Attention deficit/hyperactivity disorder [Unknown]
  - Foetal anticonvulsant syndrome [Unknown]
  - Tremor [Unknown]
  - Bundle branch block right [Unknown]
  - Foot deformity [Unknown]
  - Grunting [Unknown]
  - Auditory disorder [Unknown]
  - Anxiety [Unknown]
  - Foetal exposure during pregnancy [Unknown]
  - Intestinal obstruction [Unknown]
  - Conduction disorder [Unknown]
  - Testicular retraction [Unknown]
  - Lordosis [Unknown]
  - Balance disorder [Unknown]
  - Tooth hypoplasia [Unknown]
  - Developmental hip dysplasia [Unknown]
  - Kyphosis [Unknown]
  - Fatigue [Unknown]
  - Arthralgia [Unknown]
  - Pain in extremity [Unknown]
  - Disturbance in attention [Unknown]
  - Motor dysfunction [Unknown]
  - Joint laxity [Unknown]
  - Scoliosis [Unknown]
  - Ear, nose and throat examination abnormal [Unknown]
  - Tachycardia [Unknown]
  - Dysmorphism [Unknown]
  - Dyspraxia [Unknown]
  - Urinary tract malformation [Unknown]
  - Group B streptococcus neonatal sepsis [Unknown]

NARRATIVE: CASE EVENT DATE: 200705
